FAERS Safety Report 5127290-4 (Version None)
Quarter: 2006Q4

REPORT INFORMATION
  Report Type: 
  Country: None (occurrence: None)
  Receive Date: 20061010
  Receipt Date: 20060929
  Transmission Date: 20070319
  Serious: Yes (Death)
  Sender: FDA-Public Use
  Company Number: B0440689A

PATIENT
  Age: 55 Year
  Sex: Female

DRUGS (12)
  1. MYLERAN [Suspect]
     Indication: BONE MARROW CONDITIONING REGIMEN
  2. RADIOTHERAPY (FORMULATION UNKNOWN) (RADIOTHERAPY) [Suspect]
     Indication: BONE MARROW CONDITIONING REGIMEN
  3. ANTITHYMOCYTE IG [Concomitant]
  4. CYCLOSPORINE [Concomitant]
  5. ACYCLOVIR [Concomitant]
  6. LEVOFLOXACIN [Concomitant]
  7. CYCLOPHOSPHAMIDE [Suspect]
     Indication: BONE MARROW CONDITIONING REGIMEN
     Dosage: 60 MG/KG/INTRAVENOUS
     Route: 042
  8. FLUCONAZOLE [Concomitant]
  9. PREDNISONE TAB [Concomitant]
  10. SIMULECT [Concomitant]
  11. GANCICLOVIR [Concomitant]
  12. METHOTREXATE [Concomitant]

REACTIONS (21)
  - ABDOMINAL PAIN [None]
  - ACTIVATED PARTIAL THROMBOPLASTIN TIME PROLONGED [None]
  - ASCITES [None]
  - CEREBRAL HAEMORRHAGE [None]
  - COMPLICATIONS OF BONE MARROW TRANSPLANT [None]
  - DIARRHOEA [None]
  - FLATULENCE [None]
  - HAEMODIALYSIS [None]
  - HEPATIC FAILURE [None]
  - HEPATIC NECROSIS [None]
  - HEPATORENAL SYNDROME [None]
  - INTERNATIONAL NORMALISED RATIO INCREASED [None]
  - LIVER TRANSPLANT [None]
  - LUNG INFECTION [None]
  - MUCOSAL INFLAMMATION [None]
  - MYCOPLASMA INFECTION [None]
  - NERVOUS SYSTEM DISORDER [None]
  - PYREXIA [None]
  - STEM CELL TRANSPLANT [None]
  - THROMBOCYTOPENIA [None]
  - VENOOCCLUSIVE LIVER DISEASE [None]
